FAERS Safety Report 17224850 (Version 1)
Quarter: 2020Q1

REPORT INFORMATION
  Report Type: Spontaneous
  Country: US (occurrence: US)
  Receive Date: 20191231
  Receipt Date: 20191231
  Transmission Date: 20200409
  Serious: Yes (Life-Threatening, Hospitalization, Other)
  Sender: FDA-Public Use
  Company Number: None

PATIENT
  Age: 60 Year
  Sex: Male
  Weight: 86 kg

DRUGS (1)
  1. APIXABAN [Suspect]
     Active Substance: APIXABAN
     Indication: DEEP VEIN THROMBOSIS
     Route: 048
     Dates: start: 20191007, end: 20191028

REACTIONS (6)
  - Acute respiratory failure [None]
  - Blood loss anaemia [None]
  - Blood glucose decreased [None]
  - Upper gastrointestinal haemorrhage [None]
  - Encephalopathy [None]
  - Hypoxia [None]

NARRATIVE: CASE EVENT DATE: 20191029
